FAERS Safety Report 19368626 (Version 1)
Quarter: 2021Q2

REPORT INFORMATION
  Report Type: Spontaneous
  Country: US (occurrence: US)
  Receive Date: 20210602
  Receipt Date: 20210602
  Transmission Date: 20210717
  Serious: Yes (Hospitalization)
  Sender: FDA-Public Use
  Company Number: US-SA-2021SA175702

PATIENT
  Age: 48 Year
  Sex: Female

DRUGS (3)
  1. TRIAMCINOLONE ACETONIDE. [Suspect]
     Active Substance: TRIAMCINOLONE ACETONIDE
     Indication: RASH PRURITIC
     Dosage: TWO RECENT HIGH?DOSE INTRAMUSCULAR INJECTIONS TRIAMCINOLONE ACETONIDE 80 MG
     Route: 030
  2. SELINEXOR [Suspect]
     Active Substance: SELINEXOR
     Indication: PLASMA CELL MYELOMA
     Dosage: 80 MG, BIW
     Route: 048
  3. DEXAMETHASONE SALT NOT SPECIFIED [Suspect]
     Active Substance: DEXAMETHASONE
     Indication: PLASMA CELL MYELOMA
     Dosage: 20 MG, BIW
     Route: 048

REACTIONS (6)
  - Mental status changes [Recovered/Resolved]
  - Insomnia [Recovering/Resolving]
  - Confusional state [Recovering/Resolving]
  - Substance-induced psychotic disorder [Recovering/Resolving]
  - Pressure of speech [Recovering/Resolving]
  - Emotional disorder [Recovering/Resolving]
